FAERS Safety Report 6432889-9 (Version None)
Quarter: 2009Q4

REPORT INFORMATION
  Report Type: 
  Country: None (occurrence: None)
  Receive Date: 20091109
  Receipt Date: 20091102
  Transmission Date: 20100525
  Serious: Yes (Death, Hospitalization)
  Sender: FDA-Public Use
  Company Number: US-GILEAD-2009-0024795

PATIENT
  Sex: Female
  Weight: 98.518 kg

DRUGS (19)
  1. LETAIRIS [Suspect]
     Indication: PULMONARY ARTERIAL HYPERTENSION
     Dates: start: 20090901
  2. LOVENOX [Concomitant]
  3. LASIX [Concomitant]
  4. LISINOPRIL [Concomitant]
  5. CARDIZEM [Concomitant]
  6. DIGOXIN [Concomitant]
  7. ALBUTEROL [Concomitant]
  8. ADVAIR DISKUS 100/50 [Concomitant]
  9. SINGULAIR [Concomitant]
  10. ATROVENT [Concomitant]
  11. OXYGEN [Concomitant]
  12. SOMA [Concomitant]
  13. TUSSIONEX [Concomitant]
  14. THYROID TAB [Concomitant]
  15. NOREL SR [Concomitant]
  16. BENADRYL [Concomitant]
  17. NORCO [Concomitant]
  18. POTASSIUM CHLORIDE [Concomitant]
  19. CENTRUM MULTIVITAMINS WITH MINERALS [Concomitant]

REACTIONS (2)
  - CARDIAC FAILURE CONGESTIVE [None]
  - PULMONARY HYPERTENSION [None]
